FAERS Safety Report 6312015-7 (Version None)
Quarter: 2009Q3

REPORT INFORMATION
  Report Type: 
  Country: None (occurrence: None)
  Receive Date: 20090817
  Receipt Date: 20090806
  Transmission Date: 20100115
  Serious: Yes (Other)
  Sender: FDA-Public Use
  Company Number: PHEH2009US08031

PATIENT
  Sex: Male

DRUGS (1)
  1. DIOVAN [Suspect]
     Indication: HYPERTENSION
     Dosage: 320 MG, DAILY
     Route: 048

REACTIONS (6)
  - BLISTER [None]
  - PAIN [None]
  - RASH [None]
  - SCAB [None]
  - STEVENS-JOHNSON SYNDROME [None]
  - URTICARIA [None]
